FAERS Safety Report 11333043 (Version 1)
Quarter: 2015Q3

REPORT INFORMATION
  Report Type: Spontaneous
  Country: US (occurrence: US)
  Receive Date: 20150803
  Receipt Date: 20150803
  Transmission Date: 20151125
  Serious: Yes (Other)
  Sender: FDA-Public Use
  Company Number: US-ELI_LILLY_AND_COMPANY-US200603001091

PATIENT
  Weight: 77.1 kg

DRUGS (2)
  1. ZYPREXA [Suspect]
     Active Substance: OLANZAPINE
     Indication: SCHIZOPHRENIA
     Dates: start: 199901, end: 200511
  2. SEROQUEL                                /UNK/ [Concomitant]

REACTIONS (3)
  - Type 1 diabetes mellitus [Unknown]
  - Type 2 diabetes mellitus [Unknown]
  - Weight increased [Unknown]

NARRATIVE: CASE EVENT DATE: 2003
